FAERS Safety Report 21464158 (Version 1)
Quarter: 2022Q4

REPORT INFORMATION
  Report Type: Report from Study
  Country: US (occurrence: US)
  Receive Date: 20221017
  Receipt Date: 20221017
  Transmission Date: 20230113
  Serious: Yes (Other)
  Sender: FDA-Public Use
  Company Number: US-ABBVIE-4155898

PATIENT
  Sex: Female

DRUGS (1)
  1. HUMIRA [Suspect]
     Active Substance: ADALIMUMAB
     Indication: Crohn^s disease
     Dosage: STRENGTH: 40MG/0.4ML, CITRATE FREE
     Route: 058

REACTIONS (7)
  - Haemorrhage [Recovering/Resolving]
  - Muscle spasms [Recovered/Resolved]
  - Dehydration [Recovering/Resolving]
  - Ulcer haemorrhage [Unknown]
  - Hypotension [Unknown]
  - Vital functions abnormal [Unknown]
  - Heart rate increased [Unknown]
